FAERS Safety Report 25767403 (Version 1)
Quarter: 2025Q3

REPORT INFORMATION
  Report Type: Spontaneous
  Country: US (occurrence: None)
  Receive Date: 20250904
  Receipt Date: 20250904
  Transmission Date: 20251020
  Serious: Yes (Other)
  Sender: FDA-CTU
  Company Number: None

PATIENT
  Age: 21 Year
  Sex: Female
  Weight: 104 kg

DRUGS (17)
  1. INFED [Suspect]
     Active Substance: IRON DEXTRAN
     Indication: Iron deficiency anaemia
     Route: 042
     Dates: start: 20250624, end: 20250624
  2. HUMATE-P [Suspect]
     Active Substance: HUMAN COAGULATION FACTOR VIII/VON WILLEBRAND FACTOR COMPLEX
     Indication: Von Willebrand^s disease
     Route: 040
  3. Amitriptyline 50 mg PO daily [Concomitant]
  4. Amlodipine 10 mg PO daily [Concomitant]
  5. Cetirizine 10 mg PO daily [Concomitant]
  6. Vitamin D 125 mcg PO daily [Concomitant]
  7. Escitalopram 20 mg PO daily [Concomitant]
  8. Fluticasone 110 mcg/actuation 2 puffs daily [Concomitant]
  9. Hydroxyzine PO prn [Concomitant]
  10. Lisinopril 5 mg PO daily [Concomitant]
  11. Medroxyprogesterone 150 mg IM every 3 months [Concomitant]
  12. Melatonin 5 mg PO daily [Concomitant]
  13. Ofloxacin ear drops daily [Concomitant]
  14. Phenazopyridine 200 mg PO TID [Concomitant]
  15. Quetiapine 50 mg PO BID [Concomitant]
  16. SUMATRIPTAN [Concomitant]
     Active Substance: SUMATRIPTAN
  17. Trulance 3 mg [Concomitant]

REACTIONS (11)
  - Infusion related reaction [None]
  - Oropharyngeal pain [None]
  - Pharyngeal swelling [None]
  - Throat tightness [None]
  - Dyspnoea [None]
  - Stridor [None]
  - Dizziness [None]
  - Pulse abnormal [None]
  - Blood pressure decreased [None]
  - Tachycardia [None]
  - Fear [None]

NARRATIVE: CASE EVENT DATE: 20250624
